FAERS Safety Report 7383233-4 (Version None)
Quarter: 2011Q1

REPORT INFORMATION
  Report Type: 
  Country: None (occurrence: None)
  Receive Date: 20110330
  Receipt Date: 20110317
  Transmission Date: 20110831
  Serious: Yes (Other)
  Sender: FDA-Public Use
  Company Number: PHHY2011TW22344

PATIENT
  Sex: Female

DRUGS (2)
  1. ZOLEDRONIC ACID [Suspect]
     Dosage: 4 MG, UNK
     Route: 042
     Dates: start: 20090423
  2. ZOLEDRONIC ACID [Suspect]
     Dosage: 4 MG, UNK
     Route: 042
     Dates: start: 20101209

REACTIONS (3)
  - BONE DISORDER [None]
  - TOOTHACHE [None]
  - PERIODONTITIS [None]
